FAERS Safety Report 6825909-0 (Version None)
Quarter: 2010Q3

REPORT INFORMATION
  Report Type: 
  Country: None (occurrence: None)
  Receive Date: 20100709
  Receipt Date: 20070906
  Transmission Date: 20110219
  Serious: Yes (Other)
  Sender: FDA-Public Use
  Company Number: GB-JNJFOC-20100701216

PATIENT
  Age: 89 Year
  Sex: Female

DRUGS (5)
  1. ACETAMINOPHEN AND CODEINE PHOSPHATE [Suspect]
     Indication: PAIN
     Route: 048
  2. CIPRAMIL [Concomitant]
     Dosage: 1 DAY
     Route: 048
  3. LANSOPRAZOLE [Concomitant]
     Dosage: 1 / 1 DAYS
     Route: 048
  4. LOSARTAN POSTASSIUM [Concomitant]
     Route: 048
  5. STEMETIL [Concomitant]
     Dosage: 3 / 1 DAYS
     Route: 048

REACTIONS (1)
  - IMMOBILE [None]
